FAERS Safety Report 5151604-2 (Version None)
Quarter: 2006Q4

REPORT INFORMATION
  Report Type: 
  Country: None (occurrence: None)
  Receive Date: 20061115
  Receipt Date: 20060308
  Transmission Date: 20070319
  Serious: No
  Sender: FDA-Public Use
  Company Number: US-BRISTOL-MYERS SQUIBB COMPANY-13308085

PATIENT
  Age: 23 Year
  Sex: Female
  Weight: 129 kg

DRUGS (5)
  1. SUSTIVA [Suspect]
     Dates: start: 20050901, end: 20051220
  2. TRUVADA [Concomitant]
     Dates: end: 20051220
  3. LEXAPRO [Concomitant]
     Dates: end: 20051220
  4. XANAX [Concomitant]
     Dates: end: 20051220
  5. SEROQUEL [Concomitant]
     Dates: end: 20051220

REACTIONS (1)
  - PREGNANCY [None]
